FAERS Safety Report 19786701 (Version 5)
Quarter: 2021Q4

REPORT INFORMATION
  Report Type: Report from Study
  Country: FR (occurrence: FR)
  Receive Date: 20210903
  Receipt Date: 20211208
  Transmission Date: 20220303
  Serious: Yes (Hospitalization)
  Sender: FDA-Public Use
  Company Number: FR-JNJFOC-20210856219

PATIENT
  Age: 30 Year
  Sex: Female

DRUGS (3)
  1. SPRAVATO [Suspect]
     Active Substance: ESKETAMINE
     Indication: Depression
     Dosage: 56 MG, 13 TOTAL DOSES
     Dates: start: 20210413, end: 20210607
  2. SPRAVATO [Suspect]
     Active Substance: ESKETAMINE
     Dosage: 84 MG, 13 TOTAL DOSES
     Dates: start: 20210615, end: 20210920
  3. LOXAPINE [Concomitant]
     Active Substance: LOXAPINE
     Indication: Anxiety
     Dosage: 5 DROPS 5MG FOUR TIMES A DAY

REACTIONS (2)
  - Mental disorder [Recovered/Resolved]
  - Drug ineffective [Unknown]

NARRATIVE: CASE EVENT DATE: 20210816
